FAERS Safety Report 11432628 (Version 2)
Quarter: 2015Q3

REPORT INFORMATION
  Report Type: Spontaneous
  Country: US (occurrence: US)
  Receive Date: 20150828
  Receipt Date: 20150918
  Transmission Date: 20151125
  Serious: Yes (Hospitalization)
  Sender: FDA-Public Use
  Company Number: US-TEVA-590008USA

PATIENT
  Age: 24 Year
  Sex: Male

DRUGS (20)
  1. LEVETIRACETAM. [Suspect]
     Active Substance: LEVETIRACETAM
     Indication: SEIZURE
     Dosage: 2000 MILLIGRAM DAILY;
     Route: 065
  2. VANCOMYCIN [Concomitant]
     Active Substance: VANCOMYCIN
     Indication: INFECTION
  3. ACICLOVIR [Concomitant]
     Active Substance: ACYCLOVIR
     Indication: MENINGITIS
  4. MEROPENEM. [Concomitant]
     Active Substance: MEROPENEM
  5. VANCOMYCIN [Concomitant]
     Active Substance: VANCOMYCIN
     Indication: MENINGITIS
  6. CEFTRIAXONE. [Concomitant]
     Active Substance: CEFTRIAXONE
     Indication: ENCEPHALITIS
  7. ACICLOVIR [Concomitant]
     Active Substance: ACYCLOVIR
     Indication: ENCEPHALITIS
  8. FLUCONAZOLE. [Concomitant]
     Active Substance: FLUCONAZOLE
     Indication: INFECTION
  9. LINEZOLID. [Concomitant]
     Active Substance: LINEZOLID
  10. MICAFUNGIN [Concomitant]
     Active Substance: MICAFUNGIN
     Indication: PANCREATIC PSEUDOCYST
  11. LEVETIRACETAM. [Suspect]
     Active Substance: LEVETIRACETAM
     Indication: SEIZURE
     Dosage: LOADING DOSE
     Route: 065
  12. CEFTRIAXONE. [Concomitant]
     Active Substance: CEFTRIAXONE
     Indication: MENINGITIS
  13. CEFEPIME [Concomitant]
     Active Substance: CEFEPIME HYDROCHLORIDE
  14. DAPTOMYCIN. [Concomitant]
     Active Substance: DAPTOMYCIN
  15. ERTAPENEM [Concomitant]
     Active Substance: ERTAPENEM
     Indication: INFECTION
  16. GENTAMICIN. [Concomitant]
     Active Substance: GENTAMICIN
     Indication: INFECTION
  17. VANCOMYCIN [Concomitant]
     Active Substance: VANCOMYCIN
     Indication: ENCEPHALITIS
  18. METRONIDAZOLE. [Concomitant]
     Active Substance: METRONIDAZOLE
  19. TOBRAMYCIN. [Concomitant]
     Active Substance: TOBRAMYCIN
     Indication: PSEUDOMONAS INFECTION
  20. HEPARIN [Concomitant]
     Active Substance: HEPARIN SODIUM
     Indication: THROMBOPHLEBITIS SUPERFICIAL

REACTIONS (2)
  - Eosinophilia [Recovered/Resolved]
  - Pyrexia [Recovered/Resolved]
